FAERS Safety Report 18044475 (Version 1)
Quarter: 2020Q3

REPORT INFORMATION
  Report Type: Spontaneous
  Country: US (occurrence: US)
  Receive Date: 20200720
  Receipt Date: 20200720
  Transmission Date: 20201103
  Serious: Yes (Other)
  Sender: FDA-Public Use
  Company Number: None

PATIENT
  Age: 52 Year
  Sex: Female
  Weight: 128.25 kg

DRUGS (12)
  1. CPAP [Concomitant]
     Active Substance: DEVICE
  2. OMEPRAZOLE. [Concomitant]
     Active Substance: OMEPRAZOLE
  3. DULOXETINE. [Concomitant]
     Active Substance: DULOXETINE
  4. GABAPENTIN. [Concomitant]
     Active Substance: GABAPENTIN
  5. MULTIVITAMIN [Concomitant]
     Active Substance: VITAMINS
  6. CLARITIN [Concomitant]
     Active Substance: LORATADINE
  7. VYVANSE [Concomitant]
     Active Substance: LISDEXAMFETAMINE DIMESYLATE
  8. CALCIUM [Concomitant]
     Active Substance: CALCIUM
  9. MIRALAX [Suspect]
     Active Substance: POLYETHYLENE GLYCOL 3350
     Indication: CONSTIPATION
  10. LOSARTAN. [Concomitant]
     Active Substance: LOSARTAN
  11. SYNTHROID [Concomitant]
     Active Substance: LEVOTHYROXINE SODIUM
  12. TRAZODONE [Concomitant]
     Active Substance: TRAZODONE HYDROCHLORIDE

REACTIONS (4)
  - Anxiety [None]
  - Emotional disorder [None]
  - Anger [None]
  - Screaming [None]

NARRATIVE: CASE EVENT DATE: 20180725
